FAERS Safety Report 18111182 (Version 1)
Quarter: 2020Q3

REPORT INFORMATION
  Report Type: Spontaneous
  Country: DE (occurrence: DE)
  Receive Date: 20200804
  Receipt Date: 20200804
  Transmission Date: 20201103
  Serious: Yes (Hospitalization)
  Sender: FDA-Public Use
  Company Number: NVSC2020DE215172

PATIENT
  Age: 72 Year
  Sex: Male

DRUGS (1)
  1. SANDIMMUN OPTORAL [Suspect]
     Active Substance: CYCLOSPORINE
     Indication: IMMUNOSUPPRESSION
     Dosage: 100 MG, BID
     Route: 065

REACTIONS (4)
  - Cardiac disorder [Unknown]
  - Arthralgia [Unknown]
  - Weight decreased [Unknown]
  - Influenza like illness [Unknown]
